FAERS Safety Report 18368088 (Version 1)
Quarter: 2020Q4

REPORT INFORMATION
  Report Type: Spontaneous
  Country: DE (occurrence: FR)
  Receive Date: 20201009
  Receipt Date: 20201009
  Transmission Date: 20210114
  Serious: Yes (Hospitalization)
  Sender: FDA-Public Use
  Company Number: FR-ELI_LILLY_AND_COMPANY-FR202010001798

PATIENT
  Age: 72 Year
  Sex: Female

DRUGS (2)
  1. ERBITUX [Suspect]
     Active Substance: CETUXIMAB
     Indication: NEOPLASM MALIGNANT
     Dosage: UNK UNK, UNKNOWN
     Route: 042
     Dates: start: 20200518, end: 20200813
  2. ERBITUX [Suspect]
     Active Substance: CETUXIMAB
     Dosage: 740 MG, UNKNOWN
     Route: 042
     Dates: start: 20200820, end: 20200903

REACTIONS (2)
  - Electrolyte imbalance [Recovered/Resolved]
  - Malignant neoplasm progression [Recovered/Resolved]

NARRATIVE: CASE EVENT DATE: 20200622
